FAERS Safety Report 4756067-4 (Version None)
Quarter: 2005Q3

REPORT INFORMATION
  Report Type: 
  Country: None (occurrence: None)
  Receive Date: 20050826
  Receipt Date: 20041110
  Transmission Date: 20060218
  Serious: Yes (Other)
  Sender: FDA-Public Use
  Company Number: USA-2004-0017667

PATIENT
  Age: 19 Year
  Sex: Male
  Weight: 65.8 kg

DRUGS (4)
  1. OXYCONTIN [Suspect]
  2. CATAPRES-TTS-1 [Concomitant]
  3. CLONIDINE [Concomitant]
  4. DARVON [Concomitant]

REACTIONS (2)
  - DRUG ABUSER [None]
  - DRUG DEPENDENCE [None]
